FAERS Safety Report 19732107 (Version 1)
Quarter: 2021Q3

REPORT INFORMATION
  Report Type: Spontaneous
  Country: US (occurrence: US)
  Receive Date: 20210820
  Receipt Date: 20210820
  Transmission Date: 20211014
  Serious: No
  Sender: FDA-Public Use
  Company Number: US-ARBOR PHARMACEUTICALS, LLC-US-2020ARB000562

PATIENT
  Age: 10 Year
  Sex: Female

DRUGS (5)
  1. TRIPTODUR [Suspect]
     Active Substance: TRIPTORELIN
     Dosage: UNK, SINGLE
     Route: 030
     Dates: start: 20201106, end: 20201106
  2. TRIPTODUR [Suspect]
     Active Substance: TRIPTORELIN
  3. TRIPTODUR [Suspect]
     Active Substance: TRIPTORELIN
     Indication: PRODUCT USED FOR UNKNOWN INDICATION
     Dosage: UNK, SINGLE
     Route: 030
     Dates: start: 20200522, end: 20200522
  4. TRIPTODUR [Suspect]
     Active Substance: TRIPTORELIN
  5. TRIPTODUR [Suspect]
     Active Substance: TRIPTORELIN
     Dosage: UNK, SINGLE
     Route: 030
     Dates: start: 20210514, end: 20210514

REACTIONS (9)
  - Incorrect dose administered [Unknown]
  - Puberty [Not Recovered/Not Resolved]
  - Affect lability [Recovering/Resolving]
  - Crying [Recovering/Resolving]
  - Injection site pain [Recovered/Resolved]
  - Product physical issue [Unknown]
  - Needle issue [Unknown]
  - Anger [Recovering/Resolving]
  - Affect lability [Recovered/Resolved]

NARRATIVE: CASE EVENT DATE: 202005
